FAERS Safety Report 19711660 (Version 1)
Quarter: 2021Q3

REPORT INFORMATION
  Report Type: Spontaneous
  Country: AU (occurrence: AU)
  Receive Date: 20210816
  Receipt Date: 20210816
  Transmission Date: 20211014
  Serious: Yes (Hospitalization, Other)
  Sender: FDA-Public Use
  Company Number: NVSC2021AU182930

PATIENT
  Sex: Female

DRUGS (3)
  1. KYMRIAH [Suspect]
     Active Substance: TISAGENLECLEUCEL
     Indication: DIFFUSE LARGE B-CELL LYMPHOMA RECURRENT
     Dosage: UNK
     Route: 065
     Dates: start: 202104
  2. FLUDARABINE [Concomitant]
     Active Substance: FLUDARABINE PHOSPHATE
     Indication: DRUG THERAPY
     Dosage: UNK
     Route: 065
  3. CYCLOPHOSPHAMIDE. [Concomitant]
     Active Substance: CYCLOPHOSPHAMIDE
     Indication: DRUG THERAPY
     Dosage: UNK
     Route: 065

REACTIONS (11)
  - Cytokine release syndrome [Unknown]
  - Febrile neutropenia [Unknown]
  - Pyrexia [Unknown]
  - Cytopenia [Recovering/Resolving]
  - Neutropenia [Unknown]
  - Anaemia [Unknown]
  - Confusional state [Unknown]
  - Bone marrow disorder [Unknown]
  - Back pain [Unknown]
  - Delirium [Unknown]
  - Muscular weakness [Unknown]
